FAERS Safety Report 14266312 (Version 1)
Quarter: 2017Q4

REPORT INFORMATION
  Report Type: Spontaneous
  Country: IT (occurrence: IT)
  Receive Date: 20171210
  Receipt Date: 20171210
  Transmission Date: 20180321
  Serious: Yes (Death)
  Sender: FDA-Public Use
  Company Number: PHHY2017IT180506

PATIENT
  Age: 91 Year
  Sex: Male
  Weight: 76 kg

DRUGS (4)
  1. LINEZOLID. [Suspect]
     Active Substance: LINEZOLID
     Indication: NOCARDIOSIS
     Dosage: 600 MG, BID
     Route: 042
  2. SULFAMETHOXAZOLE AND TRIMETHOPRIM [Suspect]
     Active Substance: SULFAMETHOXAZOLE\TRIMETHOPRIM
     Indication: NOCARDIOSIS
     Dosage: (TRIMETHOPRIM/SULFAMETHOXAZOLE 160/800 MG), TID
     Route: 042
  3. CIPROFLOXACIN. [Suspect]
     Active Substance: CIPROFLOXACIN
     Indication: NOCARDIOSIS
     Dosage: 200 MG, BID
     Route: 042
  4. RECOMBINANT HUMAN ERYTHROPOIETIN [Concomitant]
     Active Substance: ERYTHROPOIETIN
     Indication: AUTOIMMUNE HAEMOLYTIC ANAEMIA
     Dosage: 40000 IU, QW
     Route: 058
     Dates: start: 201203

REACTIONS (5)
  - Dyspnoea [Fatal]
  - Coma [Fatal]
  - Depressed level of consciousness [Fatal]
  - Pleural effusion [Fatal]
  - Central nervous system lesion [Fatal]
